FAERS Safety Report 14928698 (Version 1)
Quarter: 2018Q2

REPORT INFORMATION
  Report Type: Spontaneous
  Country: US (occurrence: US)
  Receive Date: 20180504
  Receipt Date: 20180504
  Transmission Date: 20180711
  Serious: Yes (Hospitalization)
  Sender: FDA-Public Use
  Company Number: None

PATIENT
  Age: 97 Year
  Sex: Male
  Weight: 62.6 kg

DRUGS (2)
  1. ASPIRIN. [Suspect]
     Active Substance: ASPIRIN
     Indication: CORONARY ARTERIAL STENT INSERTION
     Route: 048
     Dates: start: 20151020, end: 20180129
  2. WARFARIN [Suspect]
     Active Substance: WARFARIN
     Indication: ATRIAL FIBRILLATION
     Dates: start: 20151117, end: 20171221

REACTIONS (9)
  - Haematochezia [None]
  - Arteriovenous malformation [None]
  - Haemorrhoidal haemorrhage [None]
  - Haemoglobin decreased [None]
  - Dizziness [None]
  - Constipation [None]
  - Lower gastrointestinal haemorrhage [None]
  - Gastrointestinal haemorrhage [None]
  - Diverticulum [None]

NARRATIVE: CASE EVENT DATE: 20171221
